FAERS Safety Report 11599275 (Version 21)
Quarter: 2018Q4

REPORT INFORMATION
  Report Type: Report from Study
  Country: US (occurrence: US)
  Receive Date: 20151006
  Receipt Date: 20181025
  Transmission Date: 20190204
  Serious: Yes (Hospitalization, Other)
  Sender: FDA-Public Use
  Company Number: US-ACTELION-A-NJ2015-124867

PATIENT
  Age: 44 Year
  Sex: Female
  Weight: 65.31 kg

DRUGS (33)
  1. OPSUMIT [Suspect]
     Active Substance: MACITENTAN
     Indication: PULMONARY ARTERIAL HYPERTENSION
     Dosage: 10 MG, QD
     Route: 048
     Dates: start: 20140801
  2. ASPIRIN. [Concomitant]
     Active Substance: ASPIRIN
  3. OXYCODONE [Concomitant]
     Active Substance: OXYCODONE
     Dosage: 30 MG, UNK
  4. SPIRONOLACTONE. [Concomitant]
     Active Substance: SPIRONOLACTONE
     Dosage: UNK
     Dates: start: 20100222
  5. XARELTO [Concomitant]
     Active Substance: RIVAROXABAN
     Dosage: 20 MG, UNK
  6. LACTULOSE. [Concomitant]
     Active Substance: LACTULOSE
  7. ALBUMIN [Concomitant]
     Active Substance: ALBUMIN HUMAN
     Dosage: UNK
     Dates: start: 20150906
  8. PANTOPRAZOLE [Concomitant]
     Active Substance: PANTOPRAZOLE
     Dosage: UNK
     Dates: start: 20160219
  9. LASIX [Suspect]
     Active Substance: FUROSEMIDE
     Indication: OEDEMA PERIPHERAL
     Dosage: 80 MG, BID
     Route: 048
     Dates: start: 20150131
  10. METOLAZONE. [Suspect]
     Active Substance: METOLAZONE
     Indication: OEDEMA PERIPHERAL
     Dosage: 2.5 MG, QD
     Route: 048
  11. REVATIO [Concomitant]
     Active Substance: SILDENAFIL CITRATE
     Dosage: 20 MG, TID
     Route: 048
  12. CEPHULAC [Concomitant]
     Active Substance: LACTULOSE
     Dosage: UNK, 10 GM/ML
  13. DOLOPHINE [Concomitant]
     Active Substance: METHADONE HYDROCHLORIDE
     Dosage: 10 MG, UNK
  14. ACTIGALL [Concomitant]
     Active Substance: URSODIOL
     Dosage: 300 MG, BID
     Route: 048
  15. DABIGATRAN [Concomitant]
     Active Substance: DABIGATRAN
     Indication: PRODUCT USED FOR UNKNOWN INDICATION
     Dosage: 150 MG, BID
     Route: 048
     Dates: start: 20111129
  16. OXYGEN. [Concomitant]
     Active Substance: OXYGEN
     Dosage: 1 L, UNK AT NIGHT
     Dates: start: 20131014
  17. CHOLECALCIFEROL [Concomitant]
     Active Substance: CHOLECALCIFEROL
     Dosage: 1000 U, QD
     Route: 048
     Dates: start: 20140219
  18. DEXTROSE. [Concomitant]
     Active Substance: DEXTROSE
     Dosage: UNK
     Dates: start: 20150906
  19. POTASSIUM CHLORIDE. [Concomitant]
     Active Substance: POTASSIUM CHLORIDE
     Dosage: UNK
     Dates: start: 20160220
  20. MYCOPHENOLATE MOFETIL. [Concomitant]
     Active Substance: MYCOPHENOLATE MOFETIL
     Dosage: 250 MG, UNK
  21. ZANTAC [Concomitant]
     Active Substance: RANITIDINE HYDROCHLORIDE
     Dosage: 300 MG, UNK
  22. ALDACTONE [Concomitant]
     Active Substance: SPIRONOLACTONE
     Dosage: 50 MG, UNK
  23. FOLIC ACID. [Concomitant]
     Active Substance: FOLIC ACID
     Dosage: 1 MG, QD
     Route: 048
     Dates: start: 20150307
  24. ENOXAPARIN [Concomitant]
     Active Substance: ENOXAPARIN
     Dosage: UNK
     Dates: start: 20160417
  25. METHADONE [Concomitant]
     Active Substance: METHADONE HYDROCHLORIDE
     Dosage: UNK
     Dates: start: 20080225
  26. LASIX [Suspect]
     Active Substance: FUROSEMIDE
     Dosage: 40 MG, BID
     Route: 048
  27. RIFAXIMIN. [Concomitant]
     Active Substance: RIFAXIMIN
  28. FERROUS SULFATE. [Concomitant]
     Active Substance: FERROUS SULFATE
     Dosage: UNK
     Dates: start: 20151105
  29. PRILOSEC [Concomitant]
     Active Substance: OMEPRAZOLE MAGNESIUM
     Dosage: 40 MG, UNK
  30. FENTANYL. [Concomitant]
     Active Substance: FENTANYL
     Dosage: UNK
     Dates: start: 20150822
  31. IOHEXOL [Concomitant]
     Active Substance: IOHEXOL
     Dosage: UNK
     Dates: start: 20160417
  32. LASIX [Suspect]
     Active Substance: FUROSEMIDE
     Dosage: 60 MG, BID
     Route: 048
  33. XIFAXAN [Concomitant]
     Active Substance: RIFAXIMIN
     Dosage: 550 MG, UNK

REACTIONS (39)
  - Gastrointestinal haemorrhage [Recovered/Resolved with Sequelae]
  - Bronchial wall thickening [Recovered/Resolved]
  - Jaundice acholuric [Recovered/Resolved with Sequelae]
  - Varices oesophageal [Recovered/Resolved]
  - Rhinitis [Unknown]
  - Hypervolaemia [Recovered/Resolved]
  - Confusional state [Unknown]
  - Pulmonary oedema [Unknown]
  - Anaemia [Unknown]
  - Portal hypertensive gastropathy [Unknown]
  - Respiratory failure [Recovered/Resolved]
  - Oxygen therapy [Unknown]
  - Dizziness [Recovered/Resolved with Sequelae]
  - Occult blood positive [Recovered/Resolved with Sequelae]
  - Gastric polyps [Unknown]
  - Skin ulcer [Unknown]
  - Oedema peripheral [Unknown]
  - Haemorrhage [Unknown]
  - Hepatic encephalopathy [Unknown]
  - Wound infection pseudomonas [Unknown]
  - Acute kidney injury [Unknown]
  - Transfusion [Unknown]
  - Gastrointestinal erosion [Unknown]
  - Blood bilirubin increased [Unknown]
  - Back pain [Recovered/Resolved]
  - Melaena [Recovered/Resolved with Sequelae]
  - Swelling [Unknown]
  - Compression fracture [Unknown]
  - Faeces discoloured [Recovered/Resolved with Sequelae]
  - Atelectasis [Unknown]
  - Chills [Recovered/Resolved with Sequelae]
  - Crying [Unknown]
  - Surgery [Unknown]
  - Pneumonia [Unknown]
  - Fatigue [Recovered/Resolved with Sequelae]
  - Haemoglobin decreased [Recovered/Resolved with Sequelae]
  - Encephalopathy [Recovered/Resolved with Sequelae]
  - Ammonia increased [Recovered/Resolved with Sequelae]
  - Hypothyroidism [Unknown]

NARRATIVE: CASE EVENT DATE: 201412
